FAERS Safety Report 10949350 (Version 1)
Quarter: 2015Q1

REPORT INFORMATION
  Report Type: Spontaneous
  Country: US (occurrence: None)
  Receive Date: 20150323
  Receipt Date: 20150323
  Transmission Date: 20150721
  Serious: Yes (Other)
  Sender: FDA-Public Use
  Company Number: None

PATIENT
  Age: 65 Year
  Sex: Male
  Weight: 131.54 kg

DRUGS (7)
  1. COQ10 [Concomitant]
     Active Substance: UBIDECARENONE
  2. QUINAPRIL [Concomitant]
     Active Substance: QUINAPRIL\QUINAPRIL HYDROCHLORIDE
  3. MULTIVITAMIN [Concomitant]
     Active Substance: VITAMINS
  4. METOPROLOL [Concomitant]
     Active Substance: METOPROLOL
  5. ASPIRIN. [Concomitant]
     Active Substance: ASPIRIN
  6. COLESEVELAM HYDROCHLORIDE [Suspect]
     Active Substance: COLESEVELAM HYDROCHLORIDE
     Indication: BLOOD CHOLESTEROL ABNORMAL
     Dosage: 3 TABLET
     Route: 048
     Dates: start: 20150304, end: 20150307
  7. FISH OIL [Concomitant]
     Active Substance: FISH OIL

REACTIONS (7)
  - Infrequent bowel movements [None]
  - Flatulence [None]
  - Pollakiuria [None]
  - Feeling abnormal [None]
  - Diarrhoea [None]
  - Gastric disorder [None]
  - Pyrexia [None]

NARRATIVE: CASE EVENT DATE: 20150304
